FAERS Safety Report 12483248 (Version 1)
Quarter: 2016Q2

REPORT INFORMATION
  Report Type: Spontaneous
  Country: US (occurrence: US)
  Receive Date: 20160621
  Receipt Date: 20160621
  Transmission Date: 20160815
  Serious: Yes (Other)
  Sender: FDA-Public Use
  Company Number: US-BEH-2016070375

PATIENT
  Sex: Female

DRUGS (1)
  1. HIZENTRA [Suspect]
     Active Substance: HUMAN IMMUNOGLOBULIN G
     Indication: PRODUCT USED FOR UNKNOWN INDICATION
     Route: 065

REACTIONS (8)
  - Limb injury [Unknown]
  - Rash [Unknown]
  - Altered state of consciousness [Unknown]
  - Memory impairment [Unknown]
  - Feeling abnormal [Unknown]
  - Nightmare [Unknown]
  - Somnambulism [Unknown]
  - Urinary incontinence [Unknown]
